FAERS Safety Report 5258398-0 (Version None)
Quarter: 2007Q1

REPORT INFORMATION
  Report Type: 
  Country: None (occurrence: None)
  Receive Date: 20070306
  Receipt Date: 20070306
  Transmission Date: 20070707
  Serious: Yes (Hospitalization)
  Sender: FDA-Public Use
  Company Number: None

PATIENT
  Age: 68 Year
  Sex: Male
  Weight: 100.6985 kg

DRUGS (4)
  1. WARFARIN SODIUM [Suspect]
  2. COMBIVENT [Concomitant]
  3. MAALOX FAST BLOCKER [Concomitant]
  4. PEPCID [Concomitant]

REACTIONS (4)
  - BLOOD URINE PRESENT [None]
  - HAEMATOCHEZIA [None]
  - INTERNATIONAL NORMALISED RATIO INCREASED [None]
  - SUBDURAL HAEMATOMA [None]
